FAERS Safety Report 12567385 (Version 3)
Quarter: 2016Q3

REPORT INFORMATION
  Report Type: Report from Study
  Country: IT (occurrence: IT)
  Receive Date: 20160718
  Receipt Date: 20160804
  Transmission Date: 20161109
  Serious: Yes (Hospitalization)
  Sender: FDA-Public Use
  Company Number: IT-TEVA-671208ACC

PATIENT
  Age: 66 Year
  Sex: Male

DRUGS (7)
  1. DEXAMETHASONE. [Concomitant]
     Active Substance: DEXAMETHASONE
     Indication: PRODUCT USED FOR UNKNOWN INDICATION
  2. PALONOSETRON [Concomitant]
     Active Substance: PALONOSETRON
     Indication: PRODUCT USED FOR UNKNOWN INDICATION
  3. IRINOTECAN [Suspect]
     Active Substance: IRINOTECAN
     Indication: COLORECTAL CANCER METASTATIC
     Dosage: 310 MG CYCLICAL
     Route: 041
     Dates: start: 20150119, end: 20160511
  4. FOLINIC ACID [Suspect]
     Active Substance: LEUCOVORIN
     Indication: COLORECTAL CANCER METASTATIC
     Dosage: 350 MG CYCLICAL
     Route: 041
     Dates: start: 20150119, end: 20160511
  5. ZALTRAP [Suspect]
     Active Substance: ZIV-AFLIBERCEPT
     Indication: COLORECTAL CANCER METASTATIC
     Dosage: 270 MG CYCLICAL
     Route: 041
     Dates: start: 20150119, end: 20160511
  6. FLUOROURACIL. [Suspect]
     Active Substance: FLUOROURACIL
     Indication: COLORECTAL CANCER METASTATIC
     Dosage: 700 MG CYCLICAL
     Route: 040
     Dates: start: 20150119, end: 20160511
  7. ATROPINE SULFATE. [Concomitant]
     Active Substance: ATROPINE SULFATE
     Indication: PRODUCT USED FOR UNKNOWN INDICATION

REACTIONS (5)
  - Nausea [Recovered/Resolved]
  - Asthenia [Recovered/Resolved]
  - Diarrhoea haemorrhagic [Recovered/Resolved]
  - Abdominal pain [Recovered/Resolved]
  - Vomiting [Recovered/Resolved]

NARRATIVE: CASE EVENT DATE: 20160515
